FAERS Safety Report 4552582-7 (Version None)
Quarter: 2005Q1

REPORT INFORMATION
  Report Type: 
  Country: None (occurrence: None)
  Receive Date: 20050114
  Receipt Date: 20040930
  Transmission Date: 20050727
  Serious: No
  Sender: FDA-Public Use
  Company Number: US-GLAXOSMITHKLINE-A0527952A

PATIENT
  Age: 55 Year
  Sex: Female

DRUGS (5)
  1. IMITREX [Suspect]
     Indication: MIGRAINE
     Dosage: 6MGML AS REQUIRED
     Route: 048
  2. PREVACID [Concomitant]
  3. TOPROL-XL [Concomitant]
  4. PAXIL CR [Concomitant]
  5. PREMARINE [Concomitant]

REACTIONS (1)
  - DRUG INEFFECTIVE [None]
